FAERS Safety Report 5081987-3 (Version None)
Quarter: 2006Q3

REPORT INFORMATION
  Report Type: 
  Country: None (occurrence: None)
  Receive Date: 20060811
  Receipt Date: 20060803
  Transmission Date: 20061208
  Serious: Yes (Hospitalization)
  Sender: FDA-Public Use
  Company Number: HQWYE872706OCT05

PATIENT
  Age: 25 Year
  Sex: Male

DRUGS (10)
  1. RAPAMUNE [Suspect]
     Indication: PROPHYLAXIS AGAINST TRANSPLANT REJECTION
     Dosage: SEE IMAGE, ORAL
     Route: 048
     Dates: start: 20050715, end: 20060112
  2. RAPAMUNE [Suspect]
     Indication: PROPHYLAXIS AGAINST TRANSPLANT REJECTION
     Dosage: SEE IMAGE, ORAL
     Route: 048
     Dates: start: 20060113, end: 20060130
  3. RAPAMUNE [Suspect]
     Indication: PROPHYLAXIS AGAINST TRANSPLANT REJECTION
     Dosage: SEE IMAGE, ORAL
     Route: 048
     Dates: start: 20060131, end: 20060510
  4. RAPAMUNE [Suspect]
     Indication: PROPHYLAXIS AGAINST TRANSPLANT REJECTION
     Dosage: SEE IMAGE, ORAL
     Route: 048
     Dates: start: 20050704, end: 20060714
  5. RAPAMUNE [Suspect]
     Indication: PROPHYLAXIS AGAINST TRANSPLANT REJECTION
     Dosage: SEE IMAGE, ORAL
     Route: 048
     Dates: start: 20060511
  6. CYCLOSPORINE [Suspect]
     Dosage: SEE IMAGE,
     Dates: start: 20050704, end: 20050713
  7. CYCLOSPORINE [Suspect]
     Dosage: SEE IMAGE,
     Dates: start: 20050714, end: 20051006
  8. CYCLOSPORINE [Suspect]
     Dosage: SEE IMAGE,
     Dates: start: 20051007, end: 20060413
  9. CYCLOSPORINE [Suspect]
     Dosage: SEE IMAGE,
     Dates: start: 20060414
  10. PREDNISONE TAB [Concomitant]

REACTIONS (3)
  - KIDNEY TRANSPLANT REJECTION [None]
  - RENAL IMPAIRMENT [None]
  - RENAL TUBULAR NECROSIS [None]
